FAERS Safety Report 6316143-1 (Version None)
Quarter: 2009Q3

REPORT INFORMATION
  Report Type: 
  Country: None (occurrence: None)
  Receive Date: 20090819
  Receipt Date: 20090819
  Transmission Date: 20100115
  Serious: Yes (Death)
  Sender: FDA-Public Use
  Company Number: None

PATIENT
  Age: 63 Year
  Sex: Female
  Weight: 65.7716 kg

DRUGS (2)
  1. TOPOTECAN [Suspect]
     Indication: OVARIAN CANCER
     Dosage: 6.5MG WEEKLY X3: INTRAVENOUS (NOT OTHERWISE SPECIFIED)
     Route: 042
     Dates: start: 20090326, end: 20090702
  2. SORAFENIB [Suspect]
     Indication: OVARIAN CANCER
     Dosage: 400MG DAILY
     Dates: start: 20090326, end: 20090727

REACTIONS (16)
  - ABDOMINAL DISTENSION [None]
  - ABDOMINAL PAIN [None]
  - AGITATION [None]
  - ASTHENIA [None]
  - CONFUSIONAL STATE [None]
  - DYSPNOEA [None]
  - ECONOMIC PROBLEM [None]
  - GENERAL PHYSICAL HEALTH DETERIORATION [None]
  - HYPOPHAGIA [None]
  - MALIGNANT NEOPLASM PROGRESSION [None]
  - OVARIAN CANCER RECURRENT [None]
  - PAIN [None]
  - PERITONEAL EFFUSION [None]
  - PLEURAL EFFUSION [None]
  - RESPIRATORY FAILURE [None]
  - VOMITING [None]
